FAERS Safety Report 9883433 (Version 1)
Quarter: 2014Q1

REPORT INFORMATION
  Report Type: Spontaneous
  Country: US (occurrence: US)
  Receive Date: 20140210
  Receipt Date: 20140210
  Transmission Date: 20141002
  Serious: No
  Sender: FDA-Public Use
  Company Number: US-BIOGENIDEC-2013BI113215

PATIENT
  Sex: Female

DRUGS (5)
  1. AVONEX [Suspect]
     Indication: MULTIPLE SCLEROSIS
     Route: 030
     Dates: start: 201205, end: 201206
  2. COPAXONE [Concomitant]
     Dates: start: 201206, end: 201304
  3. BACLOFEN [Concomitant]
  4. CELEXA [Concomitant]
  5. ATIVAN [Concomitant]

REACTIONS (3)
  - Influenza like illness [Unknown]
  - Drug ineffective [Unknown]
  - Diarrhoea [Unknown]
